FAERS Safety Report 8219859-5 (Version None)
Quarter: 2012Q1

REPORT INFORMATION
  Report Type: 
  Country: None (occurrence: None)
  Receive Date: 20120319
  Receipt Date: 20120309
  Transmission Date: 20120608
  Serious: Yes (Hospitalization, Other)
  Sender: FDA-Public Use
  Company Number: US-ASTRAZENECA-2010SE06150

PATIENT
  Age: 77 Year
  Sex: Female

DRUGS (5)
  1. ATACAND [Suspect]
     Route: 048
  2. NEXIUM [Suspect]
     Route: 048
  3. NEXIUM [Suspect]
     Dosage: DAILY
     Route: 048
  4. NEXIUM [Suspect]
     Dosage: TWICE A DAY
     Route: 048
  5. NEXIUM [Suspect]
     Route: 048

REACTIONS (18)
  - SKIN CANCER [None]
  - UPPER LIMB FRACTURE [None]
  - MALAISE [None]
  - DRUG DISPENSING ERROR [None]
  - STRESS FRACTURE [None]
  - HYPERTENSION [None]
  - LARYNGITIS [None]
  - DIZZINESS [None]
  - INAPPROPRIATE SCHEDULE OF DRUG ADMINISTRATION [None]
  - HIP FRACTURE [None]
  - WEIGHT DECREASED [None]
  - HYPERSENSITIVITY [None]
  - FALL [None]
  - ABDOMINAL DISCOMFORT [None]
  - INTERVERTEBRAL DISC PROTRUSION [None]
  - UPPER RESPIRATORY TRACT INFECTION [None]
  - FATIGUE [None]
  - ADVERSE EVENT [None]
